FAERS Safety Report 7679784-5 (Version None)
Quarter: 2011Q3

REPORT INFORMATION
  Report Type: 
  Country: None (occurrence: None)
  Receive Date: 20110812
  Receipt Date: 20110801
  Transmission Date: 20111222
  Serious: Yes (Hospitalization)
  Sender: FDA-Public Use
  Company Number: US-JNJFOC-20090506193

PATIENT
  Sex: Male
  Weight: 52.3 kg

DRUGS (2)
  1. REMICADE [Suspect]
     Dosage: TOTAL 10 DOSES
     Route: 042
     Dates: start: 20081209
  2. REMICADE [Suspect]
     Indication: COLITIS ULCERATIVE
     Route: 042
     Dates: start: 20071205

REACTIONS (2)
  - SMALL INTESTINAL OBSTRUCTION [None]
  - COLITIS ULCERATIVE [None]
